FAERS Safety Report 10195686 (Version 1)
Quarter: 2014Q2

REPORT INFORMATION
  Report Type: Spontaneous
  Country: US (occurrence: US)
  Receive Date: 20140527
  Receipt Date: 20140527
  Transmission Date: 20141212
  Serious: No
  Sender: FDA-Public Use
  Company Number: US-009507513-1405USA012741

PATIENT
  Sex: Female

DRUGS (1)
  1. MIRALAX [Suspect]
     Indication: PRODUCT USED FOR UNKNOWN INDICATION
     Dosage: 7 TO 8 GRAMS, UNKNOWN
     Route: 048

REACTIONS (4)
  - Inappropriate schedule of drug administration [Unknown]
  - Drug prescribing error [Unknown]
  - Intentional underdose [Unknown]
  - Product quality issue [Unknown]
